FAERS Safety Report 8294098-0 (Version None)
Quarter: 2012Q2

REPORT INFORMATION
  Report Type: 
  Country: None (occurrence: None)
  Receive Date: 20120418
  Receipt Date: 20120405
  Transmission Date: 20120825
  Serious: Yes (Other)
  Sender: FDA-Public Use
  Company Number: US-JNJFOC-20120403094

PATIENT
  Sex: Female
  Weight: 79.83 kg

DRUGS (8)
  1. METHADONE HCL [Concomitant]
     Indication: PAIN
     Route: 048
     Dates: start: 20100101
  2. ENALAPRIL MALEATE [Concomitant]
     Indication: BLOOD PRESSURE
     Route: 048
     Dates: start: 20020101
  3. ASPIRIN [Concomitant]
     Indication: MYOCARDIAL INFARCTION
     Route: 048
     Dates: start: 20020101
  4. REMICADE [Suspect]
     Indication: RHEUMATOID ARTHRITIS
     Route: 042
     Dates: start: 20110101
  5. REMICADE [Suspect]
     Indication: ANKYLOSING SPONDYLITIS
     Route: 042
     Dates: start: 20110101
  6. NORVASC [Concomitant]
     Indication: BLOOD PRESSURE
     Route: 048
     Dates: start: 20020101
  7. GABAPENTIN [Concomitant]
     Indication: PAIN
     Route: 048
     Dates: start: 20100101
  8. VENTOLIN [Concomitant]
     Route: 055
     Dates: start: 20020101

REACTIONS (7)
  - FOOT DEFORMITY [None]
  - DIARRHOEA [None]
  - OSTEOPOROSIS [None]
  - RHEUMATOID ARTHRITIS [None]
  - INFLUENZA LIKE ILLNESS [None]
  - ABNORMAL LOSS OF WEIGHT [None]
  - VOMITING [None]
